FAERS Safety Report 4652336-7 (Version None)
Quarter: 2005Q2

REPORT INFORMATION
  Report Type: 
  Country: None (occurrence: None)
  Receive Date: 20050504
  Receipt Date: 20050502
  Transmission Date: 20051028
  Serious: Yes (Hospitalization)
  Sender: FDA-Public Use
  Company Number: 150

PATIENT
  Age: 70 Year
  Sex: Male

DRUGS (9)
  1. MELPHALAN [Suspect]
     Indication: MULTIPLE MYELOMA
     Dosage: 400MG PER DAY
     Route: 042
     Dates: start: 20050303
  2. THALIDOMIDE [Suspect]
     Indication: MULTIPLE MYELOMA
     Dosage: 100MG PER DAY
     Route: 048
     Dates: start: 20050203, end: 20050228
  3. DEXAMETHASONE [Suspect]
     Indication: MULTIPLE MYELOMA
     Dosage: 20MG CYCLIC
     Dates: start: 20050203
  4. ACYCLOVIR [Concomitant]
     Dosage: 400MG TWICE PER DAY
     Route: 048
     Dates: start: 20041222
  5. TEQUIN [Concomitant]
     Dosage: 400MG PER DAY
     Route: 048
     Dates: start: 20041222
  6. ZANTAC [Concomitant]
     Dosage: 150MG PER DAY
     Route: 048
     Dates: start: 20041222
  7. ARANESP [Concomitant]
     Route: 058
     Dates: start: 20041222
  8. INVANZ [Concomitant]
     Dosage: 1G PER DAY
     Route: 042
     Dates: start: 20050328
  9. CLINDAMYCIN [Concomitant]
     Dosage: 900MG THREE TIMES PER DAY
     Route: 042
     Dates: start: 20050328

REACTIONS (5)
  - COUGH [None]
  - FAILURE TO THRIVE [None]
  - PNEUMONIA [None]
  - PYREXIA [None]
  - URINARY RETENTION [None]
